FAERS Safety Report 15124888 (Version 1)
Quarter: 2018Q3

REPORT INFORMATION
  Report Type: Report from Study
  Country: DE (occurrence: DE)
  Receive Date: 20180710
  Receipt Date: 20180710
  Transmission Date: 20181010
  Serious: Yes (Hospitalization)
  Sender: FDA-Public Use
  Company Number: PHHY2012DE130595

PATIENT
  Age: 43 Year
  Sex: Male
  Weight: 84 kg

DRUGS (2)
  1. ZARZIO [Suspect]
     Active Substance: FILGRASTIM
     Indication: STEM CELL DONOR
     Dosage: 78 MIU, UNK
     Route: 058
     Dates: start: 20120329
  2. ZARZIO [Suspect]
     Active Substance: FILGRASTIM
     Dosage: 48 MIU/0.5 ML
     Route: 058
     Dates: start: 20120402

REACTIONS (7)
  - Nephrolithiasis [Recovered/Resolved]
  - Bone pain [Recovered/Resolved]
  - Flank pain [Recovered/Resolved]
  - Nephrolithiasis [Recovered/Resolved with Sequelae]
  - Bone pain [Recovered/Resolved]
  - Flank pain [Recovered/Resolved with Sequelae]
  - Nephrolithiasis [Recovered/Resolved with Sequelae]

NARRATIVE: CASE EVENT DATE: 20120329
